FAERS Safety Report 14902251 (Version 3)
Quarter: 2018Q2

REPORT INFORMATION
  Report Type: Report from Study
  Country: US (occurrence: US)
  Receive Date: 20180516
  Receipt Date: 20180606
  Transmission Date: 20180711
  Serious: Yes (Other)
  Sender: FDA-Public Use
  Company Number: US-GILEAD-2018-0338887

PATIENT
  Age: 43 Year
  Sex: Female

DRUGS (4)
  1. REVATIO [Concomitant]
     Active Substance: SILDENAFIL CITRATE
  2. AMBRISENTAN [Suspect]
     Active Substance: AMBRISENTAN
     Indication: CORONARY ARTERY DISEASE
  3. AMBRISENTAN [Suspect]
     Active Substance: AMBRISENTAN
     Indication: PULMONARY ARTERIAL HYPERTENSION
     Dosage: 5 MG, QD
     Route: 065
     Dates: start: 20170418
  4. OXYGEN. [Concomitant]
     Active Substance: OXYGEN

REACTIONS (3)
  - Face injury [Unknown]
  - Visual impairment [Not Recovered/Not Resolved]
  - Thermal burn [Not Recovered/Not Resolved]

NARRATIVE: CASE EVENT DATE: 20180430
